FAERS Safety Report 18338020 (Version 1)
Quarter: 2020Q4

REPORT INFORMATION
  Report Type: Spontaneous
  Country: CN (occurrence: CN)
  Receive Date: 20201002
  Receipt Date: 20201002
  Transmission Date: 20210113
  Serious: Yes (Other)
  Sender: FDA-Public Use
  Company Number: CN-GLAXOSMITHKLINE-CN2020196991

PATIENT
  Age: 80 Year
  Sex: Female

DRUGS (1)
  1. VOTALIN [Suspect]
     Active Substance: DICLOFENAC SODIUM
     Indication: PAIN
     Dosage: 75 MG, BID
     Route: 048
     Dates: start: 20200901, end: 20200901

REACTIONS (2)
  - Pruritus [Recovered/Resolved]
  - Rash papular [Recovered/Resolved]

NARRATIVE: CASE EVENT DATE: 20200901
